FAERS Safety Report 19913782 (Version 2)
Quarter: 2021Q4

REPORT INFORMATION
  Report Type: Spontaneous
  Country: US (occurrence: US)
  Receive Date: 20211004
  Receipt Date: 20211105
  Transmission Date: 20220303
  Serious: No
  Sender: FDA-Public Use
  Company Number: US-ALKERMES INC.-ALK-2021-005056

PATIENT
  Sex: Female
  Weight: 63.946 kg

DRUGS (2)
  1. ARISTADA [Suspect]
     Active Substance: ARIPIPRAZOLE LAUROXIL
     Indication: Bipolar disorder
     Dosage: 1064 MILLIGRAM, Q8WK
     Route: 030
     Dates: start: 202109, end: 202109
  2. ARISTADA [Suspect]
     Active Substance: ARIPIPRAZOLE LAUROXIL
     Indication: Schizophrenia
     Dosage: 1064 MILLIGRAM, Q8WK
     Route: 030
     Dates: start: 202010, end: 202010

REACTIONS (17)
  - Off label use [Not Recovered/Not Resolved]
  - Incontinence [Not Recovered/Not Resolved]
  - Chills [Not Recovered/Not Resolved]
  - Choking [Not Recovered/Not Resolved]
  - Neurotransmitter level altered [Not Recovered/Not Resolved]
  - Bradyphrenia [Not Recovered/Not Resolved]
  - Emotional poverty [Not Recovered/Not Resolved]
  - Hypometabolism [Not Recovered/Not Resolved]
  - Neuromyopathy [Not Recovered/Not Resolved]
  - Muscle fatigue [Not Recovered/Not Resolved]
  - Tremor [Not Recovered/Not Resolved]
  - Mental impairment [Not Recovered/Not Resolved]
  - Parkinsonism [Not Recovered/Not Resolved]
  - Slow speech [Not Recovered/Not Resolved]
  - Weight increased [Not Recovered/Not Resolved]
  - Bradykinesia [Not Recovered/Not Resolved]
  - Dysphagia [Not Recovered/Not Resolved]
